FAERS Safety Report 4414513-X (Version None)
Quarter: 2004Q3

REPORT INFORMATION
  Report Type: 
  Country: None (occurrence: None)
  Receive Date: 20040702
  Receipt Date: 20030922
  Transmission Date: 20050211
  Serious: Yes (Hospitalization)
  Sender: FDA-Public Use
  Company Number: 347696

PATIENT
  Age: 51 Year
  Sex: Female

DRUGS (2)
  1. KLONOPIN [Suspect]
     Indication: ANXIETY
     Dosage: 2 MG DAILY ORAL
     Route: 048
     Dates: start: 20030315, end: 20030715
  2. DEPAKOTE [Concomitant]

REACTIONS (1)
  - ANXIETY [None]
